FAERS Safety Report 5771499-3 (Version None)
Quarter: 2008Q2

REPORT INFORMATION
  Report Type: 
  Country: None (occurrence: None)
  Receive Date: 20080611
  Receipt Date: 20080527
  Transmission Date: 20081010
  Serious: Yes (Other)
  Sender: FDA-Public Use
  Company Number: 2008S1009008

PATIENT
  Age: 17 Year
  Sex: Male

DRUGS (4)
  1. AZITHROMYCIN [Suspect]
     Indication: DRUG USE FOR UNKNOWN INDICATION
     Dosage: 250 MG;3 TIMES A DAY; ORAL
     Route: 048
  2. OMEPRAZOLE [Suspect]
     Indication: DRUG USE FOR UNKNOWN INDICATION
     Dosage: 20 MG;50; ORAL
     Route: 048
  3. ROXITHROMYCIN (ROXITHROMYCIN) [Suspect]
     Indication: DRUG USE FOR UNKNOWN INDICATION
     Dosage: 300 MG;3;ORAL
     Route: 048
  4. SALOFALK /00000301/ (AMINOSALICYLIC ACID) [Suspect]
     Indication: DRUG USE FOR UNKNOWN INDICATION
     Dosage: 250 MG;10;ORAL
     Route: 048

REACTIONS (1)
  - MULTIPLE DRUG OVERDOSE INTENTIONAL [None]
